FAERS Safety Report 18835028 (Version 1)
Quarter: 2021Q1

REPORT INFORMATION
  Report Type: Spontaneous
  Country: US (occurrence: US)
  Receive Date: 20210203
  Receipt Date: 20210203
  Transmission Date: 20210419
  Serious: No
  Sender: FDA-Public Use
  Company Number: None

PATIENT
  Age: 65 Year
  Sex: Male
  Weight: 74.25 kg

DRUGS (7)
  1. ZINC. [Concomitant]
     Active Substance: ZINC
  2. HAWTHORN BERRY EXTRACT [Concomitant]
     Active Substance: CRATAEGUS DOUGLASII FRUIT
  3. LISENOPRIL/HTCZ [Concomitant]
  4. MUSHROOM EXTRACTS (REISHI AND LIONS MANE) [Concomitant]
  5. AMLODIPINE [Suspect]
     Active Substance: AMLODIPINE BESYLATE
     Indication: HYPERTENSION
     Dosage: ?          QUANTITY:1 CAPSULE(S);?
     Route: 048
     Dates: start: 20150522, end: 20200723
  6. COENZYME Q10 [Concomitant]
     Active Substance: DIETARY SUPPLEMENT\UBIDECARENONE
  7. DAILY VITAMIN [Concomitant]
     Active Substance: VITAMINS

REACTIONS (4)
  - Head titubation [None]
  - Tremor [None]
  - Muscular weakness [None]
  - Coordination abnormal [None]
